FAERS Safety Report 24057808 (Version 1)
Quarter: 2024Q3

REPORT INFORMATION
  Report Type: Spontaneous
  Country: US (occurrence: US)
  Receive Date: 20240707
  Receipt Date: 20240707
  Transmission Date: 20241017
  Serious: No
  Sender: SANOFI AVENTIS
  Company Number: US-SANOFI-02118655

PATIENT
  Age: 81 Year
  Sex: Female

DRUGS (2)
  1. SOLIQUA 100/33 [Suspect]
     Active Substance: INSULIN GLARGINE\LIXISENATIDE
     Indication: Type 2 diabetes mellitus
     Dosage: 26 IU, QD
  2. SOLIQUA 100/33 [Suspect]
     Active Substance: INSULIN GLARGINE\LIXISENATIDE
     Dosage: 32 IU, QD

REACTIONS (1)
  - Streptococcal infection [Recovering/Resolving]
